FAERS Safety Report 7118999 (Version 5)
Quarter: 2012Q4

REPORT INFORMATION
  Report Type: 
  Country: AU (occurrence: AU)
  Receive Date: 20090918
  Receipt Date: 20121009
  Transmission Date: 20130627
  Serious: Yes (Hospitalization)
  Sender: FDA-Public Use
  Company Number: PHHY2009AU38413

PATIENT
  Age: 38 Year
  Sex: Female

DRUGS (10)
  1. CLOZARIL [Suspect]
     Indication: SCHIZOPHRENIA
     Dosage: 100 mg, daily
     Route: 048
     Dates: start: 19990318
  2. CLOZARIL [Suspect]
     Dosage: 450 mg, daily
     Route: 048
     Dates: end: 20100510
  3. CLOZARIL [Suspect]
     Dosage: 500 mg, daily
     Dates: start: 20100706
  4. CLOZARIL [Suspect]
     Dates: start: 20120919
  5. ATORVASTATIN [Concomitant]
     Indication: HYPERLIPIDAEMIA
     Dosage: 40 mg, in mane
  6. VALPROATE SODIUM [Concomitant]
     Indication: SCHIZOAFFECTIVE DISORDER
     Dosage: 1500 mg, BID
     Route: 048
  7. METFORMIN [Concomitant]
     Indication: DIABETES MELLITUS
     Dosage: 1 g, BID
     Route: 048
  8. THYROXINE [Concomitant]
     Indication: THYROID DISORDER
     Dosage: 100 ug, in mane
     Route: 048
  9. LEVONORGESTREL W/ETHINYLESTRADIOL [Concomitant]
     Indication: CONTRACEPTION
     Route: 048
  10. SITAGLIPTIN [Concomitant]
     Indication: DIABETES MELLITUS
     Dosage: 100 mg, Mane
     Route: 048

REACTIONS (3)
  - Schizophrenia [Recovering/Resolving]
  - Mental disorder [Recovering/Resolving]
  - Antipsychotic drug level above therapeutic [Unknown]
